FAERS Safety Report 26001454 (Version 1)
Quarter: 2025Q4

REPORT INFORMATION
  Report Type: Report from Study
  Country: US (occurrence: US)
  Receive Date: 20251105
  Receipt Date: 20251105
  Transmission Date: 20260119
  Serious: No
  Sender: SANDOZ
  Company Number: US-SANDOZ-SDZ2025US009617

PATIENT
  Sex: Male

DRUGS (2)
  1. OMNITROPE [Suspect]
     Active Substance: SOMATROPIN
     Indication: Hypopituitarism
     Dosage: 1.6 MG, QD (SOLUTION FOR INJECTION IN CARTRIDGE)
     Route: 058
     Dates: start: 20250213
  2. OMNITROPE [Suspect]
     Active Substance: SOMATROPIN
     Indication: Hypopituitarism
     Dosage: 1.6 MG, QD (SOLUTION FOR INJECTION IN CARTRIDGE)
     Route: 058
     Dates: start: 20250213

REACTIONS (5)
  - Wrong technique in device usage process [Unknown]
  - Incorrect dose administered [Unknown]
  - Device breakage [Unknown]
  - Product availability issue [Unknown]
  - Device malfunction [Unknown]
